FAERS Safety Report 6527442-2 (Version None)
Quarter: 2010Q1

REPORT INFORMATION
  Report Type: 
  Country: None (occurrence: None)
  Receive Date: 20100105
  Receipt Date: 20091229
  Transmission Date: 20100710
  Serious: Yes (Other)
  Sender: FDA-Public Use
  Company Number: US-PFIZER INC-2009316013

PATIENT
  Sex: Male
  Weight: 67.12 kg

DRUGS (1)
  1. LYRICA [Suspect]
     Indication: NEUROPATHY PERIPHERAL
     Dates: start: 20091212, end: 20091212

REACTIONS (2)
  - INSOMNIA [None]
  - PSYCHOTIC DISORDER [None]
